FAERS Safety Report 7532536-9 (Version None)
Quarter: 2011Q2

REPORT INFORMATION
  Report Type: 
  Country: None (occurrence: None)
  Receive Date: 20110608
  Receipt Date: 20110527
  Transmission Date: 20111010
  Serious: Yes (Hospitalization, Other)
  Sender: FDA-Public Use
  Company Number: PHFR2011GB01481

PATIENT
  Sex: Male

DRUGS (11)
  1. VENLAFAXINE [Concomitant]
     Indication: ANTIDEPRESSANT THERAPY
     Dosage: 75 MG/DAY
     Route: 048
  2. ENSURE [Concomitant]
     Indication: MEDICAL DIET
     Dosage: UNK
     Route: 048
  3. MOVIPREP [Concomitant]
     Indication: CONSTIPATION
     Dosage: UNK, TID
     Route: 048
  4. SIMVASTATIN [Concomitant]
     Indication: BLOOD CHOLESTEROL
     Dosage: 40 MG/DAY
     Route: 048
  5. ACETAMINOPHEN [Concomitant]
     Indication: PAIN
     Dosage: 4 G/DAY
     Route: 048
  6. NICOTINE [Concomitant]
     Indication: SMOKING CESSATION THERAPY
     Dosage: 14 MG, QD
     Route: 062
  7. PROCAL [Concomitant]
     Indication: MEDICAL DIET
     Dosage: UNK
     Route: 048
  8. CLOZAPINE [Suspect]
     Indication: SCHIZOPHRENIA
     Dosage: 225 MG, QD
     Route: 048
     Dates: start: 20080807
  9. ASPIRIN [Concomitant]
     Indication: PROPHYLAXIS
     Dosage: 75 MG/DAY
     Route: 048
  10. VALPROIC ACID [Concomitant]
     Indication: AFFECTIVE DISORDER
     Dosage: 1000 MG/DAY
     Route: 048
  11. HYOSCINE HYDROBROMIDE [Concomitant]
     Indication: SALIVARY HYPERSECRETION
     Dosage: 1 MG, Q72H
     Route: 062

REACTIONS (8)
  - IMPAIRED SELF-CARE [None]
  - SCHIZOPHRENIA [None]
  - WEIGHT DECREASED [None]
  - ANAEMIA [None]
  - MALAISE [None]
  - RENAL MASS [None]
  - HAEMOGLOBIN DECREASED [None]
  - CONSTIPATION [None]
